FAERS Safety Report 21702966 (Version 1)
Quarter: 2022Q4

REPORT INFORMATION
  Report Type: Spontaneous
  Country: US (occurrence: US)
  Receive Date: 20221209
  Receipt Date: 20221209
  Transmission Date: 20230112
  Serious: No
  Sender: FDA-Public Use
  Company Number: US-drreddys-SPO/USA/22/0157412

PATIENT
  Age: 15 Year
  Sex: Female

DRUGS (1)
  1. ZENATANE [Suspect]
     Active Substance: ISOTRETINOIN
     Indication: Acne
     Dosage: RMA ISSUE DATE: 13 JUNE 2022 02:07:00 PM, 19 JULY 2022 09:48:39 AM, 04 SEPTEMBER 2022 02:03:08 PM, 1

REACTIONS (1)
  - Treatment noncompliance [Unknown]
